FAERS Safety Report 4649836-2 (Version None)
Quarter: 2005Q2

REPORT INFORMATION
  Report Type: 
  Country: None (occurrence: None)
  Receive Date: 20050502
  Receipt Date: 20050426
  Transmission Date: 20051028
  Serious: Yes (Hospitalization)
  Sender: FDA-Public Use
  Company Number: PHEH2005US04800

PATIENT
  Age: 52 Year
  Sex: Male

DRUGS (4)
  1. LAMISIL [Suspect]
     Indication: NAIL TINEA
     Dosage: 250 MG, QD
     Route: 048
     Dates: start: 20050411, end: 20050415
  2. NITROGLYCERIN [Concomitant]
  3. ARTHROTEC [Concomitant]
     Indication: ARTHRITIS
  4. LASIX [Concomitant]

REACTIONS (2)
  - CARDIOMEGALY [None]
  - DYSPNOEA [None]
